FAERS Safety Report 9002657 (Version 1)
Quarter: 2012Q4

REPORT INFORMATION
  Report Type: Spontaneous
  Country: FR (occurrence: None)
  Receive Date: 20121226
  Receipt Date: 20121226
  Transmission Date: 20130627
  Serious: Yes (Other)
  Sender: FDA-Public Use
  Company Number: DSA_61552_2012

PATIENT
  Age: 75 Year
  Sex: Male

DRUGS (4)
  1. ZOVIRAX [Suspect]
     Indication: PRODUCT USED FOR UNKNOWN INDICATION
     Dosage: (DF)
     Dates: start: 20120901, end: 20120914
  2. INEXIUM [Suspect]
     Indication: PRODUCT USED FOR UNKNOWN INDICATION
     Dosage: (DF Oral)
     Route: 048
     Dates: start: 20120828, end: 20120907
  3. VANCOMYCIN [Suspect]
     Indication: PRODUCT USED FOR UNKNOWN INDICATION
     Dosage: (DF Intravenous (not otherwise specified))
     Route: 042
     Dates: start: 20120828, end: 20120912
  4. TRIFLUCAN [Suspect]
     Indication: PRODUCT USED FOR UNKNOWN INDICATION
     Dosage: (DF)
     Dates: start: 20120831, end: 20120909

REACTIONS (3)
  - Thrombocytopenia [None]
  - Hypoxia [None]
  - Respiratory disorder [None]
